FAERS Safety Report 4351060-8 (Version None)
Quarter: 2004Q2

REPORT INFORMATION
  Report Type: 
  Country: None (occurrence: None)
  Receive Date: 20040429
  Receipt Date: 20030909
  Transmission Date: 20050107
  Serious: No
  Sender: FDA-Public Use
  Company Number: 2003UW10899

PATIENT
  Age: 18 Year
  Sex: Female

DRUGS (1)
  1. ZOMIG-ZMT [Suspect]
     Dosage: 5 MG PO
     Route: 048

REACTIONS (2)
  - ANAPHYLACTIC REACTION [None]
  - ANGIONEUROTIC OEDEMA [None]
